FAERS Safety Report 7310263-0 (Version None)
Quarter: 2011Q1

REPORT INFORMATION
  Report Type: 
  Country: None (occurrence: None)
  Receive Date: 20110224
  Receipt Date: 20110216
  Transmission Date: 20110831
  Serious: Yes (Other)
  Sender: FDA-Public Use
  Company Number: US-US-EMD SERONO, INC.-7014461

PATIENT
  Sex: Male
  Weight: 88 kg

DRUGS (3)
  1. SALVE [Concomitant]
     Indication: PSORIASIS
  2. REBIF [Suspect]
     Indication: MULTIPLE SCLEROSIS
     Route: 058
     Dates: start: 20100326
  3. ALLOPURINOL [Concomitant]
     Indication: GOUT

REACTIONS (14)
  - EYE PAIN [None]
  - NAUSEA [None]
  - VISION BLURRED [None]
  - MIGRAINE [None]
  - MUSCULAR WEAKNESS [None]
  - INFLUENZA LIKE ILLNESS [None]
  - RETCHING [None]
  - DIZZINESS [None]
  - EYE DISORDER [None]
  - INJECTION SITE PAIN [None]
  - HEADACHE [None]
  - VOMITING [None]
  - TYPE 2 DIABETES MELLITUS [None]
  - PAIN [None]
